FAERS Safety Report 23925578 (Version 3)
Quarter: 2024Q3

REPORT INFORMATION
  Report Type: Report from Study
  Country: US (occurrence: US)
  Receive Date: 20240531
  Receipt Date: 20240924
  Transmission Date: 20241017
  Serious: Yes (Other)
  Sender: TAKEDA
  Company Number: US-TAKEDA-2024TUS013184

PATIENT
  Age: 44 Year
  Sex: Male
  Weight: 104 kg

DRUGS (15)
  1. VEDOLIZUMAB [Suspect]
     Active Substance: VEDOLIZUMAB
     Indication: Colitis ulcerative
     Dosage: UNK
     Route: 042
     Dates: start: 202401
  2. VEDOLIZUMAB [Suspect]
     Active Substance: VEDOLIZUMAB
     Indication: Colitis ulcerative
     Dosage: 108 MILLIGRAM, Q2WEEKS
     Route: 058
     Dates: start: 20240425
  3. VEDOLIZUMAB [Suspect]
     Active Substance: VEDOLIZUMAB
     Indication: Colitis ulcerative
     Dosage: 108 MILLIGRAM, Q2WEEKS
     Route: 058
     Dates: start: 20240425
  4. VEDOLIZUMAB [Suspect]
     Active Substance: VEDOLIZUMAB
     Indication: Proctitis ulcerative
     Dosage: 108 MILLIGRAM, Q2WEEKS
     Route: 058
  5. VEDOLIZUMAB [Suspect]
     Active Substance: VEDOLIZUMAB
     Indication: Proctitis ulcerative
     Dosage: 108 MILLIGRAM, Q2WEEKS
     Route: 058
  6. MYLANTA [Suspect]
     Active Substance: ALUMINUM HYDROXIDE\DIMETHICONE\MAGNESIUM HYDROXIDE
     Indication: Product used for unknown indication
     Dosage: UNK
     Route: 065
  7. METOPROLOL [Suspect]
     Active Substance: METOPROLOL
     Indication: Hypertension
     Dosage: UNK
     Route: 065
  8. ATENOLOL [Concomitant]
     Active Substance: ATENOLOL
     Dosage: UNK
  9. GABAPENTIN [Concomitant]
     Active Substance: GABAPENTIN
     Dosage: UNK
  10. XANAX [Concomitant]
     Active Substance: ALPRAZOLAM
     Dosage: UNK
  11. SACCHAROMYCES CEREVISIAE [Concomitant]
     Active Substance: SACCHAROMYCES CEREVISIAE
     Indication: Probiotic therapy
     Dosage: UNK
  12. Akkermansia muciniphila [Concomitant]
     Indication: Probiotic therapy
     Dosage: UNK
  13. PROTONIX [Concomitant]
     Active Substance: PANTOPRAZOLE SODIUM
     Indication: Gastrooesophageal reflux disease
     Dosage: UNK UNK, QD
  14. VITAMIN D [Concomitant]
     Active Substance: VITAMIN D NOS
     Dosage: UNK UNK, QD
  15. PEPCID [Concomitant]
     Active Substance: FAMOTIDINE
     Dosage: UNK

REACTIONS (24)
  - Colitis ulcerative [Unknown]
  - Diarrhoea infectious [Unknown]
  - Gastrointestinal sounds abnormal [Unknown]
  - Gastrointestinal motility disorder [Unknown]
  - Migraine [Unknown]
  - Lethargy [Unknown]
  - Poor venous access [Unknown]
  - Hypophagia [Unknown]
  - Irritable bowel syndrome [Unknown]
  - Rash pruritic [Unknown]
  - Pain [Not Recovered/Not Resolved]
  - Heart rate decreased [Unknown]
  - Injection site pain [Unknown]
  - Injection site haemorrhage [Unknown]
  - Product administration error [Unknown]
  - Incorrect dose administered [Unknown]
  - Palpitations [Unknown]
  - Abdominal pain [Unknown]
  - Flushing [Unknown]
  - Blood pressure increased [Unknown]
  - Night sweats [Recovered/Resolved]
  - Constipation [Unknown]
  - Fatigue [Unknown]
  - Diarrhoea [Unknown]

NARRATIVE: CASE EVENT DATE: 20240425
